FAERS Safety Report 19239367 (Version 2)
Quarter: 2021Q4

REPORT INFORMATION
  Report Type: Spontaneous
  Country: CA (occurrence: CA)
  Receive Date: 20210510
  Receipt Date: 20211111
  Transmission Date: 20220303
  Serious: Yes (Other)
  Sender: FDA-Public Use
  Company Number: CA-SAMSUNG BIOEPIS-SB-2021-11037

PATIENT
  Age: 43 Year
  Sex: Female

DRUGS (4)
  1. INFLIXIMAB [Suspect]
     Active Substance: INFLIXIMAB
     Indication: Ankylosing spondylitis
     Route: 042
  2. INFLIXIMAB [Suspect]
     Active Substance: INFLIXIMAB
     Route: 042
  3. IMMUNOGLOBULINS [Concomitant]
     Indication: Product used for unknown indication
     Dosage: UNKNOWN
     Route: 042
  4. METHOTREXATE [Concomitant]
     Active Substance: METHOTREXATE
     Indication: Product used for unknown indication
     Route: 058

REACTIONS (21)
  - Asthenia [Unknown]
  - Condition aggravated [Unknown]
  - Diarrhoea [Unknown]
  - Eye irritation [Unknown]
  - Eye pain [Unknown]
  - Fatigue [Unknown]
  - Foreign body in eye [Unknown]
  - Headache [Unknown]
  - Malaise [Unknown]
  - Ocular hyperaemia [Unknown]
  - Weight increased [Unknown]
  - Peripheral arterial occlusive disease [Unknown]
  - Extravasation [Unknown]
  - Poor venous access [Unknown]
  - Weight decreased [Unknown]
  - Therapeutic response shortened [Unknown]
  - Intentional product use issue [Unknown]
  - Off label use [Unknown]
  - Inappropriate schedule of product administration [Unknown]
  - Incorrect dose administered [Unknown]
  - Product administration interrupted [Unknown]
